FAERS Safety Report 4336297-6 (Version None)
Quarter: 2004Q2

REPORT INFORMATION
  Report Type: 
  Country: None (occurrence: None)
  Receive Date: 20040407
  Receipt Date: 20040324
  Transmission Date: 20050107
  Serious: Yes (Other)
  Sender: FDA-Public Use
  Company Number: USA040260287

PATIENT
  Age: 78 Year
  Sex: Female

DRUGS (3)
  1. FORTEO [Suspect]
     Indication: OSTEOPOROSIS
     Dosage: 20 UG/1 DAY
     Dates: start: 20030601
  2. MULTIVITAMIN [Concomitant]
  3. ACETYLSALICYLIC ACID SRT [Concomitant]

REACTIONS (6)
  - INTERVERTEBRAL DISC SPACE NARROWING [None]
  - KYPHOSIS [None]
  - OSTEOPENIA [None]
  - SCOLIOSIS [None]
  - SPINAL COMPRESSION FRACTURE [None]
  - SPINAL DEFORMITY [None]
